FAERS Safety Report 8288905-5 (Version None)
Quarter: 2012Q2

REPORT INFORMATION
  Report Type: 
  Country: None (occurrence: None)
  Receive Date: 20120412
  Receipt Date: 20120328
  Transmission Date: 20120825
  Serious: Yes (Death, Hospitalization, Disabling, Other)
  Sender: FDA-Public Use
  Company Number: 2012MPI00088

PATIENT
  Age: 37 Year
  Sex: Female

DRUGS (7)
  1. LENOGRASTIM (LENOGRASTIM) [Concomitant]
  2. GANCICLOVIR [Concomitant]
  3. BRENTUXIMAB VEDOTIN (BRENTUXIMAB VEDOTIN) INJECTION [Suspect]
     Indication: HODGKIN'S DISEASE
     Dosage: 100 MG, QCYCLE, INTRAVENOUS
     Route: 042
     Dates: start: 20111202
  4. OMEPRAZOLE [Concomitant]
  5. LOPERAMIDE [Concomitant]
  6. CASPOFUNGIN ACETATE [Concomitant]
  7. PREDNISOLONE ACETATE [Concomitant]

REACTIONS (8)
  - EMPYEMA [None]
  - PATHOGEN RESISTANCE [None]
  - PSEUDOMONAL SEPSIS [None]
  - HYDROPNEUMOTHORAX [None]
  - LUNG INFECTION PSEUDOMONAL [None]
  - BRONCHOPLEURAL FISTULA [None]
  - CYTOMEGALOVIRUS INFECTION [None]
  - PNEUMOTHORAX [None]
